FAERS Safety Report 5710344-9 (Version None)
Quarter: 2008Q2

REPORT INFORMATION
  Report Type: 
  Country: None (occurrence: None)
  Receive Date: 20080418
  Receipt Date: 20080408
  Transmission Date: 20081010
  Serious: Yes (Congenital Anomaly, Other)
  Sender: FDA-Public Use
  Company Number: FR-ABBOTT-08P-056-0445335-00

PATIENT
  Age: 1 Day
  Sex: Female
  Weight: 1.98 kg

DRUGS (2)
  1. DEPAKENE [Suspect]
     Indication: DRUG EXPOSURE DURING PREGNANCY
     Route: 064
  2. DEPAKENE [Suspect]

REACTIONS (13)
  - CONGENITAL ANOMALY [None]
  - DEVELOPMENTAL DELAY [None]
  - DISORIENTATION [None]
  - DISTURBANCE IN ATTENTION [None]
  - DRUG EXPOSURE DURING PREGNANCY [None]
  - EPILEPSY [None]
  - FOETAL GROWTH RETARDATION [None]
  - MEMORY IMPAIRMENT [None]
  - MENTAL RETARDATION [None]
  - MICROCEPHALY [None]
  - MOTOR DYSFUNCTION [None]
  - PREMATURE BABY [None]
  - TALIPES [None]
